FAERS Safety Report 24389551 (Version 1)
Quarter: 2024Q4

REPORT INFORMATION
  Report Type: Spontaneous
  Country: US (occurrence: US)
  Receive Date: 20241003
  Receipt Date: 20241003
  Transmission Date: 20250114
  Serious: No
  Sender: STRIDES
  Company Number: US-STRIDES ARCOLAB LIMITED-2024SP010559

PATIENT
  Age: 45 Year
  Sex: Female

DRUGS (4)
  1. PREDNISOLONE [Suspect]
     Active Substance: PREDNISOLONE
     Indication: T-cell lymphoma
     Dosage: UNK, CYCLICAL (1 CYCLE)
     Route: 065
  2. DOXORUBICIN [Suspect]
     Active Substance: DOXORUBICIN
     Indication: T-cell lymphoma
     Dosage: UNK, CYCLICAL (1 CYCLE)
     Route: 065
  3. BRENTUXIMAB VEDOTIN [Suspect]
     Active Substance: BRENTUXIMAB VEDOTIN
     Indication: T-cell lymphoma
     Dosage: UNK, CYCLICAL (1 CYCLE)
     Route: 065
  4. CYCLOPHOSPHAMIDE [Suspect]
     Active Substance: CYCLOPHOSPHAMIDE
     Indication: T-cell lymphoma
     Dosage: UNK, CYCLICAL (1 CYCLE)
     Route: 065

REACTIONS (1)
  - Drug intolerance [Unknown]
